FAERS Safety Report 24147462 (Version 4)
Quarter: 2024Q4

REPORT INFORMATION
  Report Type: Spontaneous
  Country: CA (occurrence: CA)
  Receive Date: 20240729
  Receipt Date: 20241216
  Transmission Date: 20250114
  Serious: Yes (Hospitalization, Other)
  Sender: PFIZER
  Company Number: CA-PFIZER INC-202400037486

PATIENT
  Age: 54 Year
  Sex: Male

DRUGS (20)
  1. SOMAVERT [Suspect]
     Active Substance: PEGVISOMANT
     Indication: Acromegaly
     Dosage: 10 MG, 1X/DAY
     Route: 058
     Dates: start: 20170830, end: 20171130
  2. SOMAVERT [Suspect]
     Active Substance: PEGVISOMANT
     Dosage: 20 MG, 1X/DAY
     Route: 058
     Dates: start: 2017, end: 2018
  3. SOMAVERT [Suspect]
     Active Substance: PEGVISOMANT
     Dosage: 25 MG, 1X/DAY
     Route: 058
     Dates: start: 201805, end: 2018
  4. SOMAVERT [Suspect]
     Active Substance: PEGVISOMANT
     Dosage: 30MG OD (20MG+10MG, ONE DOSE IN AM AND ONE IN PM)
     Route: 058
     Dates: start: 2018, end: 2020
  5. SOMAVERT [Suspect]
     Active Substance: PEGVISOMANT
     Dosage: 10 MG, 1X/DAY
     Route: 058
     Dates: start: 20201221, end: 2022
  6. SOMAVERT [Suspect]
     Active Substance: PEGVISOMANT
     Dosage: 1 DF, 40MG X 1 LOADING DOSE, THEN 10MG DAILY.
     Route: 058
     Dates: start: 2023
  7. SOMAVERT [Suspect]
     Active Substance: PEGVISOMANT
     Dosage: 10 MG, (1X/DAY) DAILY (7X/WEEK)
     Route: 058
  8. DOXAZOSIN [Concomitant]
     Active Substance: DOXAZOSIN\DOXAZOSIN MESYLATE
     Dosage: UNK
  9. INDAPAMIDE [Concomitant]
     Active Substance: INDAPAMIDE
     Dosage: UNK
  10. SPIRONOLACTONE [Concomitant]
     Active Substance: SPIRONOLACTONE
     Dosage: UNK
  11. VALSARTAN [Concomitant]
     Active Substance: VALSARTAN
     Dosage: UNK
  12. OCTREOTIDE ACETATE [Concomitant]
     Active Substance: OCTREOTIDE ACETATE
     Dosage: 200 UG/ML
  13. OCTREOTIDE ACETATE [Concomitant]
     Active Substance: OCTREOTIDE ACETATE
     Dosage: 100 UG/ML
  14. RIVAROXABAN [Concomitant]
     Active Substance: RIVAROXABAN
     Dosage: UNK,10 MORE DAYS
  15. LEVOTHYROXINE SODIUM [Concomitant]
     Active Substance: LEVOTHYROXINE SODIUM
     Dosage: 100 UG
     Route: 048
  16. SOTALOL HYDROCHLORIDE [Concomitant]
     Active Substance: SOTALOL HYDROCHLORIDE
     Dosage: 120 MG, 2X/DAY(BID)
  17. JARDIANCE [Concomitant]
     Active Substance: EMPAGLIFLOZIN
     Dosage: 10 MG
  18. CARVEDILOL [Concomitant]
     Active Substance: CARVEDILOL
     Dosage: 12.5 MG
     Route: 048
  19. ENTRESTO [Concomitant]
     Active Substance: SACUBITRIL\VALSARTAN
     Dosage: UNK (49 MG-51 MG)
  20. CHOLECALCIFEROL [Concomitant]
     Active Substance: CHOLECALCIFEROL
     Dosage: UNK

REACTIONS (16)
  - Cardiac disorder [Recovering/Resolving]
  - Ventricular tachycardia [Unknown]
  - Hypervolaemia [Unknown]
  - Transsphenoidal surgery [Unknown]
  - Exophthalmos [Unknown]
  - Basal ganglia infarction [Unknown]
  - Nodule [Unknown]
  - Fatigue [Unknown]
  - Feeling hot [Unknown]
  - Glomerular filtration rate decreased [Unknown]
  - Blood creatinine increased [Unknown]
  - Carbon dioxide decreased [Unknown]
  - Thyroxine free decreased [Unknown]
  - Blood testosterone decreased [Unknown]
  - Glycosylated haemoglobin increased [Unknown]
  - Insulin-like growth factor increased [Unknown]

NARRATIVE: CASE EVENT DATE: 20231201
